FAERS Safety Report 18713626 (Version 7)
Quarter: 2022Q4

REPORT INFORMATION
  Report Type: Report from Study
  Country: US (occurrence: US)
  Receive Date: 20210107
  Receipt Date: 20221121
  Transmission Date: 20230113
  Serious: Yes (Other)
  Sender: FDA-Public Use
  Company Number: NVSC2021US001767

PATIENT
  Sex: Female

DRUGS (2)
  1. KESIMPTA [Suspect]
     Active Substance: OFATUMUMAB
     Indication: Product used for unknown indication
     Dosage: 20 MG, QMO
     Route: 058
  2. ASCORBIC ACID [Suspect]
     Active Substance: ASCORBIC ACID
     Indication: Product used for unknown indication
     Route: 065

REACTIONS (13)
  - Oesophageal disorder [Unknown]
  - Precancerous cells present [Unknown]
  - Hiatus hernia [Unknown]
  - Hepatic mass [Unknown]
  - Renal mass [Unknown]
  - Polyp [Unknown]
  - Pain [Unknown]
  - Musculoskeletal pain [Recovered/Resolved]
  - Back pain [Recovered/Resolved]
  - Dizziness [Recovering/Resolving]
  - Injection site pain [Unknown]
  - Hiccups [Unknown]
  - Electric shock sensation [Unknown]
